FAERS Safety Report 20308317 (Version 2)
Quarter: 2022Q1

REPORT INFORMATION
  Report Type: Spontaneous
  Country: US (occurrence: US)
  Receive Date: 20220107
  Receipt Date: 20220215
  Transmission Date: 20220423
  Serious: Yes (Death, Other)
  Sender: FDA-Public Use
  Company Number: US-AMGEN-USASP2022000374

PATIENT

DRUGS (4)
  1. CARFILZOMIB [Suspect]
     Active Substance: CARFILZOMIB
     Indication: Plasma cell myeloma
     Dosage: UNK, CARFILZOMIB 20/36 MG/M2 ON DAYS 1,2,8,9,15,16 FOR CYCLES 1-8, THEN 36 MG/M2
     Route: 065
  2. DARATUMUMAB [Suspect]
     Active Substance: DARATUMUMAB
     Indication: Plasma cell myeloma
     Dosage: 16 MILLIGRAM/KILOGRAM, DAYS 1, 8, 15, 22 FOR CYCLES 1 + 2, DAYS 1
     Route: 042
  3. LENALIDOMIDE [Suspect]
     Active Substance: LENALIDOMIDE
     Indication: Plasma cell myeloma
     Dosage: 25 MILLIGRAM, DAYS 1-21 OF A 28 DAY CYCLE FOR 24 CYCLES
     Route: 048
  4. DEXAMETHASONE [Suspect]
     Active Substance: DEXAMETHASONE
     Indication: Plasma cell myeloma
     Dosage: 40 MILLIGRAM, FOR CYCLES 1-9, AND 20 MG PO WEEKLYFOR CYCLES 9-24
     Route: 048

REACTIONS (7)
  - Nervous system disorder [Fatal]
  - Plasma cell myeloma [Fatal]
  - Leukopenia [Unknown]
  - Thrombocytopenia [Unknown]
  - Thrombotic microangiopathy [Unknown]
  - Therapy non-responder [Unknown]
  - Hypertension [Unknown]
